FAERS Safety Report 4690665-1 (Version None)
Quarter: 2005Q2

REPORT INFORMATION
  Report Type: 
  Country: None (occurrence: None)
  Receive Date: 20050615
  Receipt Date: 20050606
  Transmission Date: 20051028
  Serious: Yes (Hospitalization, Other)
  Sender: FDA-Public Use
  Company Number: RU-GLAXOSMITHKLINE-B0384047A

PATIENT
  Age: 68 Year
  Sex: Male
  Weight: 60 kg

DRUGS (1)
  1. LAMICTAL [Suspect]
     Indication: EPILEPSY
     Dosage: 50MG PER DAY
     Route: 048
     Dates: start: 20010101, end: 20050201

REACTIONS (8)
  - AMNESIA [None]
  - ANAEMIA VITAMIN B12 DEFICIENCY [None]
  - ANISOCYTOSIS [None]
  - ASTHENIA [None]
  - JAUNDICE [None]
  - MACROCYTOSIS [None]
  - OEDEMA PERIPHERAL [None]
  - WEIGHT DECREASED [None]
